FAERS Safety Report 10524160 (Version 1)
Quarter: 2014Q4

REPORT INFORMATION
  Report Type: Spontaneous
  Country: US (occurrence: None)
  Receive Date: 20141015
  Receipt Date: 20141015
  Transmission Date: 20150528
  Serious: Yes (Disabling)
  Sender: FDA-Public Use
  Company Number: None

PATIENT
  Age: 78 Year
  Sex: Male
  Weight: 81.65 kg

DRUGS (13)
  1. ZETIA [Suspect]
     Active Substance: EZETIMIBE
     Indication: HYPERCHOLESTEROLAEMIA
     Dosage: 1, 1, 2, 1 PER DAY, ONCE DAILY, TAKEN BY MOUTH
     Route: 048
  2. GLIPIZIDE. [Suspect]
     Active Substance: GLIPIZIDE
     Indication: HYPERCHOLESTEROLAEMIA
     Route: 048
  3. BYSTOLIC [Suspect]
     Active Substance: NEBIVOLOL HYDROCHLORIDE
     Indication: DIABETES MELLITUS
     Route: 048
  4. BYSTOLIC [Suspect]
     Active Substance: NEBIVOLOL HYDROCHLORIDE
     Indication: HYPERTENSION
     Route: 048
  5. GLIPIZIDE. [Suspect]
     Active Substance: GLIPIZIDE
     Indication: HYPERTENSION
     Route: 048
  6. KAZANO [Suspect]
     Active Substance: ALOGLIPTIN BENZOATE\METFORMIN HYDROCHLORIDE
     Indication: HYPERTENSION
     Route: 048
  7. LISINOPRIL. [Suspect]
     Active Substance: LISINOPRIL
  8. BYSTOLIC [Suspect]
     Active Substance: NEBIVOLOL HYDROCHLORIDE
     Route: 048
  9. ZETIA [Suspect]
     Active Substance: EZETIMIBE
     Indication: HYPERTENSION
     Dosage: 1, 1, 2, 1 PER DAY, ONCE DAILY, TAKEN BY MOUTH
     Route: 048
  10. GLIPIZIDE. [Suspect]
     Active Substance: GLIPIZIDE
     Indication: DIABETES MELLITUS
     Route: 048
  11. KAZANO [Suspect]
     Active Substance: ALOGLIPTIN BENZOATE\METFORMIN HYDROCHLORIDE
     Indication: HYPERCHOLESTEROLAEMIA
     Route: 048
  12. ZETIA [Suspect]
     Active Substance: EZETIMIBE
     Indication: DIABETES MELLITUS
     Dosage: 1, 1, 2, 1 PER DAY, ONCE DAILY, TAKEN BY MOUTH
     Route: 048
  13. KAZANO [Suspect]
     Active Substance: ALOGLIPTIN BENZOATE\METFORMIN HYDROCHLORIDE
     Indication: DIABETES MELLITUS
     Route: 048

REACTIONS (3)
  - Hypersensitivity [None]
  - Myalgia [None]
  - Back pain [None]

NARRATIVE: CASE EVENT DATE: 20141009
